FAERS Safety Report 9646197 (Version 1)
Quarter: 2013Q4

REPORT INFORMATION
  Report Type: Spontaneous
  Country: GB (occurrence: None)
  Receive Date: 20131024
  Receipt Date: 20131024
  Transmission Date: 20140711
  Serious: Yes (Other)
  Sender: FDA-Public Use
  Company Number: AUR-APL-2013-08686

PATIENT
  Age: 55 Year
  Sex: Male
  Weight: 111.5 kg

DRUGS (2)
  1. METFORMIN [Suspect]
     Indication: TYPE 2 DIABETES MELLITUS
     Route: 048
     Dates: start: 201102, end: 201111
  2. PERINDOPRIL (PERINDOPRIL) [Concomitant]

REACTIONS (4)
  - Pain in extremity [None]
  - Headache [None]
  - Thinking abnormal [None]
  - Amnesia [None]
